FAERS Safety Report 6048123-8 (Version None)
Quarter: 2009Q1

REPORT INFORMATION
  Report Type: 
  Country: None (occurrence: None)
  Receive Date: 20090123
  Receipt Date: 20090113
  Transmission Date: 20090719
  Serious: Yes (Hospitalization)
  Sender: FDA-Public Use
  Company Number: FR-PFIZER INC-2007101875

PATIENT

DRUGS (6)
  1. BLINDED *PLACEBO [Suspect]
     Indication: CARDIAC FAILURE
     Route: 048
     Dates: start: 20070228, end: 20070309
  2. EPLERENONE [Suspect]
     Indication: CARDIAC FAILURE
     Route: 048
     Dates: start: 20070228, end: 20070309
  3. BLINDED *PLACEBO [Suspect]
     Route: 048
     Dates: start: 20070309
  4. EPLERENONE [Suspect]
     Route: 048
     Dates: start: 20070309
  5. ALLOPURINOL [Concomitant]
     Route: 048
     Dates: start: 20050101
  6. LEVOTHYROX [Concomitant]
     Route: 048
     Dates: start: 20050101

REACTIONS (2)
  - ENDOCARDITIS [None]
  - RENAL FAILURE [None]
